FAERS Safety Report 7542760-7 (Version None)
Quarter: 2011Q2

REPORT INFORMATION
  Report Type: 
  Country: None (occurrence: None)
  Receive Date: 20110613
  Receipt Date: 20110603
  Transmission Date: 20111010
  Serious: Yes (Hospitalization, Disabling)
  Sender: FDA-Public Use
  Company Number: B0661681A

PATIENT
  Sex: Male

DRUGS (47)
  1. ZOVIRAX [Suspect]
     Route: 031
     Dates: start: 20080922, end: 20080922
  2. ZOVIRAX [Suspect]
     Route: 031
     Dates: start: 20090204, end: 20090204
  3. ZOVIRAX [Suspect]
     Route: 031
     Dates: start: 20080825, end: 20080825
  4. ZOVIRAX [Suspect]
     Route: 031
     Dates: start: 20080905, end: 20080905
  5. ZOVIRAX [Suspect]
     Route: 031
     Dates: start: 20090612, end: 20090612
  6. ZOVIRAX [Suspect]
     Route: 031
     Dates: start: 20100219, end: 20100219
  7. NITOROL [Concomitant]
     Dosage: 2IUAX PER DAY
     Route: 048
     Dates: start: 20040312, end: 20091025
  8. FLUMETHOLON [Concomitant]
     Indication: OCULAR HYPERTENSION
     Route: 031
     Dates: start: 20051001, end: 20051101
  9. DIAMOX [Concomitant]
     Indication: OCULAR HYPERTENSION
     Dosage: 250MG PER DAY
     Route: 048
     Dates: start: 20100305, end: 20100402
  10. ZOVIRAX [Suspect]
     Route: 031
     Dates: start: 20090424, end: 20090424
  11. ZOVIRAX [Suspect]
     Route: 031
     Dates: start: 20090501, end: 20090501
  12. ZOVIRAX [Suspect]
     Route: 031
     Dates: start: 20090529, end: 20090529
  13. ZOVIRAX [Suspect]
     Route: 031
     Dates: start: 20090828, end: 20090828
  14. ZOVIRAX [Suspect]
     Route: 031
     Dates: start: 20100222, end: 20100222
  15. DOXAZOSIN MESYLATE [Concomitant]
     Dosage: 2MG PER DAY
     Route: 048
  16. ZOVIRAX [Concomitant]
     Dosage: 1000MG PER DAY
     Route: 048
     Dates: start: 20090422, end: 20090501
  17. ZOVIRAX [Concomitant]
     Dosage: 1000MG PER DAY
     Route: 048
     Dates: start: 20100219, end: 20100223
  18. DOXAZOSIN MESYLATE [Concomitant]
     Indication: HYPERTENSION
     Dosage: 2MG PER DAY
     Route: 048
     Dates: start: 20060417, end: 20091025
  19. OFLOXACIN [Concomitant]
     Route: 031
     Dates: start: 20071101, end: 20071101
  20. SODIUM CHLORIDE [Concomitant]
     Route: 031
  21. HYALEIN [Concomitant]
     Route: 031
     Dates: start: 20100617
  22. ZOVIRAX [Suspect]
     Route: 031
     Dates: start: 20081126, end: 20081126
  23. ZOVIRAX [Suspect]
     Route: 031
     Dates: start: 20100318, end: 20100402
  24. ZOVIRAX [Concomitant]
     Dosage: 1000MG PER DAY
     Route: 048
     Dates: start: 20080718, end: 20080722
  25. TIMOLOL MALEATE [Concomitant]
     Indication: OCULAR HYPERTENSION
     Route: 031
     Dates: start: 20051001, end: 20060101
  26. XALATAN [Concomitant]
     Indication: OCULAR HYPERTENSION
     Route: 031
     Dates: start: 20041120, end: 20100401
  27. ZOVIRAX [Suspect]
     Route: 031
     Dates: start: 20090401, end: 20090401
  28. CARTEOLOL HYDROCHLORIDE [Concomitant]
     Route: 065
  29. BENIDIPINE [Concomitant]
     Indication: HYPERTENSION
     Dosage: 4MG PER DAY
     Route: 048
     Dates: start: 20091026
  30. ZOVIRAX [Suspect]
     Route: 031
     Dates: start: 20080714, end: 20080714
  31. ZOVIRAX [Suspect]
     Route: 031
     Dates: start: 20090105, end: 20090105
  32. ZOVIRAX [Suspect]
     Route: 031
     Dates: start: 20100305, end: 20100305
  33. MEVARICH [Concomitant]
     Dosage: 10MG PER DAY
     Route: 048
     Dates: start: 20041208, end: 20100422
  34. CALBLOCK [Concomitant]
     Indication: HYPERTENSION
     Dosage: 16MG PER DAY
     Route: 048
     Dates: start: 20050430, end: 20050512
  35. TIMOPTOL [Concomitant]
     Indication: OCULAR HYPERTENSION
     Route: 031
     Dates: start: 20051001, end: 20080701
  36. CARTEOLOL HYDROCHLORIDE [Concomitant]
     Route: 031
     Dates: start: 20080701, end: 20100401
  37. ZOVIRAX [Suspect]
     Route: 031
     Dates: start: 20100226, end: 20100226
  38. ISOSORBIDE DINITRATE [Concomitant]
     Dosage: 2IUAX PER DAY
     Route: 048
  39. CRESTOR [Concomitant]
     Indication: HYPERTENSION
     Dosage: 1IUAX PER DAY
     Route: 048
  40. CONIEL [Concomitant]
     Indication: HYPERTENSION
     Dosage: 4MG PER DAY
     Route: 048
     Dates: start: 20031121, end: 20091025
  41. RINDERON A [Concomitant]
     Indication: OCULAR HYPERTENSION
     Route: 031
     Dates: start: 20070801
  42. AZOPT [Concomitant]
     Indication: OCULAR HYPERTENSION
     Route: 031
     Dates: start: 20071001, end: 20080713
  43. ISOSORBIDE DINITRATE [Concomitant]
     Route: 048
     Dates: start: 20091026
  44. ZOVIRAX [Suspect]
     Route: 031
     Dates: start: 20080718, end: 20080718
  45. ZOVIRAX [Suspect]
     Route: 031
     Dates: start: 20081210, end: 20081210
  46. XALATAN [Concomitant]
     Route: 031
  47. ZOVIRAX [Concomitant]
     Dosage: 1000MG PER DAY
     Route: 048
     Dates: start: 20090225, end: 20090301

REACTIONS (5)
  - EYE HAEMORRHAGE [None]
  - CORNEAL DISORDER [None]
  - VISUAL ACUITY REDUCED [None]
  - VISION BLURRED [None]
  - CATARACT [None]
